FAERS Safety Report 5325932-1 (Version None)
Quarter: 2007Q2

REPORT INFORMATION
  Report Type: 
  Country: None (occurrence: None)
  Receive Date: 20070516
  Receipt Date: 20070508
  Transmission Date: 20071010
  Serious: Yes (Other)
  Sender: FDA-Public Use
  Company Number: PHBS2007GT07870

PATIENT
  Age: 23 Year
  Sex: Female
  Weight: 59.863 kg

DRUGS (3)
  1. TRILEPTAL [Suspect]
     Indication: EPILEPSY
     Dosage: 300 MG, BID
     Route: 048
     Dates: start: 20060109, end: 20060724
  2. TRILEPTAL [Suspect]
     Dosage: 600 MG, BID
     Route: 048
     Dates: start: 20060701, end: 20061001
  3. ATENOLOL [Suspect]

REACTIONS (3)
  - ARRHYTHMIA [None]
  - SUPRAVENTRICULAR EXTRASYSTOLES [None]
  - VENTRICULAR EXTRASYSTOLES [None]
